FAERS Safety Report 9858552 (Version 1)
Quarter: 2014Q1

REPORT INFORMATION
  Report Type: Spontaneous
  Country: US (occurrence: US)
  Receive Date: 20140131
  Receipt Date: 20140131
  Transmission Date: 20141002
  Serious: Yes (Other)
  Sender: FDA-Public Use
  Company Number: US-MYLANLABS-2014S1001644

PATIENT
  Age: 65 Year
  Sex: Male

DRUGS (1)
  1. METOPROLOL TARTRATE TABLETS, USP [Suspect]
     Indication: HYPERTENSION
     Route: 048

REACTIONS (1)
  - Angioedema [Recovered/Resolved]
